FAERS Safety Report 8473793-4 (Version None)
Quarter: 2012Q2

REPORT INFORMATION
  Report Type: 
  Country: None (occurrence: None)
  Receive Date: 20120628
  Receipt Date: 20111115
  Transmission Date: 20120825
  Serious: Yes (Death)
  Sender: FDA-Public Use
  Company Number: US-MYLANLABS-2011S1023600

PATIENT
  Age: 49 Year
  Sex: Male

DRUGS (9)
  1. PROPRANOLOL [Concomitant]
  2. CLOZAPINE [Suspect]
     Indication: SCHIZOPHRENIA, PARANOID TYPE
     Route: 048
  3. ATENOLOL [Concomitant]
  4. LUVOX [Concomitant]
  5. DESMOPRESSIN ACETATE [Concomitant]
  6. FLUTICASONE PROPIONATE [Concomitant]
  7. ABILIFY [Concomitant]
  8. LORAZEPAM [Concomitant]
  9. BENZTROPINE MESYLATE [Concomitant]

REACTIONS (1)
  - DEATH [None]
